FAERS Safety Report 13672330 (Version 1)
Quarter: 2017Q2

REPORT INFORMATION
  Report Type: Report from Study
  Country: None (occurrence: BR)
  Receive Date: 20170620
  Receipt Date: 20170620
  Transmission Date: 20170830
  Serious: Yes (Other)
  Sender: FDA-Public Use
  Company Number: BR-ABBVIE-17K-020-2012002-00

PATIENT
  Sex: Female
  Weight: 72 kg

DRUGS (10)
  1. ADDERA D3 [Concomitant]
     Active Substance: CHOLECALCIFEROL
     Indication: PRODUCT USED FOR UNKNOWN INDICATION
     Route: 048
     Dates: start: 201704
  2. HYDROCHLOROTHIAZIDE. [Concomitant]
     Active Substance: HYDROCHLOROTHIAZIDE
     Indication: MIGRAINE
     Route: 048
     Dates: start: 2012
  3. FLUOXETINE HYDROCHLORIDE. [Concomitant]
     Active Substance: FLUOXETINE HYDROCHLORIDE
     Indication: PRODUCT USED FOR UNKNOWN INDICATION
     Route: 048
     Dates: start: 201704
  4. FAMOTIDINE. [Concomitant]
     Active Substance: FAMOTIDINE
     Indication: MIGRAINE
     Route: 048
     Dates: start: 2012
  5. HUMIRA [Suspect]
     Active Substance: ADALIMUMAB
     Indication: RHEUMATOID ARTHRITIS
     Route: 058
     Dates: start: 20120901
  6. LOSARTAN POTASSIUM. [Concomitant]
     Active Substance: LOSARTAN POTASSIUM
     Indication: MIGRAINE
     Route: 048
     Dates: start: 2012
  7. APRESOLINE HYDROCHLORIDE [Concomitant]
     Active Substance: HYDRALAZINE HYDROCHLORIDE
     Indication: MIGRAINE
     Route: 048
     Dates: start: 2012
  8. HYDROLYZED COLLAGEN [Concomitant]
     Indication: PRODUCT USED FOR UNKNOWN INDICATION
     Dosage: FORM OF ADMINISTRATION: SACHET
     Route: 048
     Dates: start: 20170607
  9. METHOTREXATE. [Concomitant]
     Active Substance: METHOTREXATE
     Indication: ARTHRITIS
     Route: 048
     Dates: start: 2013
  10. METOPROLOL. [Concomitant]
     Active Substance: METOPROLOL
     Indication: MIGRAINE
     Route: 048
     Dates: start: 2012

REACTIONS (7)
  - Vitreous detachment [Recovering/Resolving]
  - Osteoarthritis [Unknown]
  - Pain [Unknown]
  - Visual impairment [Unknown]
  - Tremor [Not Recovered/Not Resolved]
  - Anaemia [Recovering/Resolving]
  - Depression [Unknown]

NARRATIVE: CASE EVENT DATE: 2015
